FAERS Safety Report 26007815 (Version 1)
Quarter: 2025Q4

REPORT INFORMATION
  Report Type: Report from Study
  Country: CN (occurrence: CN)
  Receive Date: 20251106
  Receipt Date: 20251106
  Transmission Date: 20260118
  Serious: Yes (Other)
  Sender: PFIZER
  Company Number: CN-PFIZER INC-202500216543

PATIENT
  Age: 2 Month
  Sex: Male

DRUGS (8)
  1. METHYLPREDNISOLONE SODIUM SUCCINATE [Suspect]
     Active Substance: METHYLPREDNISOLONE SODIUM SUCCINATE
     Indication: Haemangioma-thrombocytopenia syndrome
     Dosage: 4 MG/KG, DAILY (PULSE THERAPY)
     Route: 042
  2. METHYLPREDNISOLONE SODIUM SUCCINATE [Suspect]
     Active Substance: METHYLPREDNISOLONE SODIUM SUCCINATE
     Indication: Kaposiform haemangioendothelioma
  3. METHYLPREDNISOLONE [Suspect]
     Active Substance: METHYLPREDNISOLONE
     Indication: Kaposiform haemangioendothelioma
     Dosage: 4 MG/KG, ALTERNATE DAY
     Route: 048
  4. METHYLPREDNISOLONE [Suspect]
     Active Substance: METHYLPREDNISOLONE
     Indication: Haemangioma-thrombocytopenia syndrome
  5. SIROLIMUS [Suspect]
     Active Substance: SIROLIMUS
     Indication: Kaposiform haemangioendothelioma
     Dosage: 0.8 MG/M2, 2X/DAY PER DOSE, INITIAL DOSE, TWICE DAILY AT 12-HOUR INTERVALS.1 WEEK
     Route: 048
  6. SIROLIMUS [Suspect]
     Active Substance: SIROLIMUS
     Indication: Haemangioma-thrombocytopenia syndrome
     Dosage: UNK ADJUST SIROLIMUS DOSE  (TARGET 10-15 NG/ML))
     Route: 048
  7. SIROLIMUS [Suspect]
     Active Substance: SIROLIMUS
     Dosage: UNK CONTINUE SIROLIMUS MONOTHERAPY  (FOLLOW-UP: 6-24 MONTHS)
     Route: 048
  8. SULFAMETHOXAZOLE\TRIMETHOPRIM [Concomitant]
     Active Substance: SULFAMETHOXAZOLE\TRIMETHOPRIM
     Indication: Opportunistic infection
     Dosage: 0.02 MG/KG, 1X/DAY
     Route: 048

REACTIONS (1)
  - Upper respiratory tract infection [Recovered/Resolved]
